FAERS Safety Report 10169155 (Version 1)
Quarter: 2014Q2

REPORT INFORMATION
  Report Type: Spontaneous
  Country: US (occurrence: US)
  Receive Date: 20140513
  Receipt Date: 20140513
  Transmission Date: 20141212
  Serious: No
  Sender: FDA-Public Use
  Company Number: US-TARO-2014P1002069

PATIENT
  Age: 3 Year
  Sex: Male
  Weight: 12.25 kg

DRUGS (1)
  1. CETIRIZINE HCL CHILDREN ORAL SOLUTION ALLERGY 1MG/ML (SUGARFREE GRAPE) [Suspect]
     Dates: start: 20140305

REACTIONS (2)
  - Accidental exposure to product by child [Unknown]
  - Somnolence [Unknown]
